FAERS Safety Report 16651031 (Version 1)
Quarter: 2019Q3

REPORT INFORMATION
  Report Type: Spontaneous
  Country: US (occurrence: US)
  Receive Date: 20190731
  Receipt Date: 20190731
  Transmission Date: 20191004
  Serious: No
  Sender: FDA-Public Use
  Company Number: US-BEH-2019104692

PATIENT
  Sex: Female

DRUGS (1)
  1. PRIVIGEN [Suspect]
     Active Substance: HUMAN IMMUNOGLOBULIN G
     Indication: ILL-DEFINED DISORDER
     Dosage: 70 GRAM, QD FOR 2 DAYS, THEN Q 12 WEEKS
     Route: 042
     Dates: start: 20181021

REACTIONS (3)
  - No adverse event [Unknown]
  - Headache [Unknown]
  - Product use in unapproved indication [Unknown]
